FAERS Safety Report 17242164 (Version 1)
Quarter: 2020Q1

REPORT INFORMATION
  Report Type: Spontaneous
  Country: ES (occurrence: ES)
  Receive Date: 20200107
  Receipt Date: 20200107
  Transmission Date: 20200409
  Serious: Yes (Hospitalization, Other)
  Sender: FDA-Public Use
  Company Number: ES-MYLANLABS-2019M1088679

PATIENT

DRUGS (4)
  1. FENTANILO                          /00174601/ [Suspect]
     Active Substance: FENTANYL
     Dosage: 100 MCG, Q72H
     Route: 065
  2. PREGABALIN. [Suspect]
     Active Substance: PREGABALIN
     Indication: PRODUCT USED FOR UNKNOWN INDICATION
     Dosage: 300 MG, Q12H
     Route: 065
  3. OXYCODONE [Suspect]
     Active Substance: OXYCODONE
     Indication: PRODUCT USED FOR UNKNOWN INDICATION
     Dosage: 10 MG, Q12H
     Route: 065
  4. FENTANILO                          /00174601/ [Suspect]
     Active Substance: FENTANYL
     Indication: PAIN
     Dosage: 400 MCG, (ON DEMAND)
     Route: 065

REACTIONS (2)
  - Drug dependence [Unknown]
  - Drug withdrawal syndrome [Recovered/Resolved]
